FAERS Safety Report 5915311-8 (Version None)
Quarter: 2008Q4

REPORT INFORMATION
  Report Type: 
  Country: None (occurrence: None)
  Receive Date: 20081010
  Receipt Date: 20081009
  Transmission Date: 20090506
  Serious: Yes (Death)
  Sender: FDA-Public Use
  Company Number: GB-WYE-G02325208

PATIENT
  Sex: Male

DRUGS (2)
  1. GEMTUZUMAB OZOGAMICIN [Suspect]
     Dosage: UNKNOWN
     Dates: start: 20080822, end: 20080919
  2. CYTARABINE [Suspect]
     Dosage: UNKNOWN
     Dates: start: 20080822, end: 20080919

REACTIONS (1)
  - CARDIAC ARREST [None]
